FAERS Safety Report 5813827-6 (Version None)
Quarter: 2008Q3

REPORT INFORMATION
  Report Type: 
  Country: None (occurrence: None)
  Receive Date: 20080717
  Receipt Date: 20080715
  Transmission Date: 20090109
  Serious: Yes (Death, Other)
  Sender: FDA-Public Use
  Company Number: US-WYE-H04405208

PATIENT
  Sex: Male

DRUGS (1)
  1. TYGACIL [Suspect]
     Indication: EMPYEMA
     Dosage: UNKNOWN
     Route: 042
     Dates: start: 20080123, end: 20080130

REACTIONS (3)
  - DEATH [None]
  - ESCHERICHIA BACTERAEMIA [None]
  - SEPSIS [None]
